FAERS Safety Report 6162030-1 (Version None)
Quarter: 2009Q2

REPORT INFORMATION
  Report Type: 
  Country: None (occurrence: None)
  Receive Date: 20090417
  Receipt Date: 20090417
  Transmission Date: 20091009
  Serious: Yes (Other)
  Sender: FDA-Public Use
  Company Number: None

PATIENT
  Sex: Female

DRUGS (10)
  1. RAPTIVA [Suspect]
     Indication: PSORIASIS
     Dosage: 0.6MG QW SQ
     Route: 058
     Dates: start: 20051114, end: 20090415
  2. NEXIUM [Concomitant]
  3. FLECAINIDE ACETATE [Concomitant]
  4. CLONAZEPAM [Concomitant]
  5. ZOLOFT [Concomitant]
  6. DIOVAN HCT [Concomitant]
  7. CRESTOR [Concomitant]
  8. CLOBEX SPRAY [Concomitant]
  9. POTASSIUM CHLORIDE [Concomitant]
  10. VIT+D [Concomitant]

REACTIONS (7)
  - ASTHENIA [None]
  - BLOOD PRESSURE INCREASED [None]
  - HEADACHE [None]
  - HEART RATE INCREASED [None]
  - HYPOAESTHESIA [None]
  - OEDEMA PERIPHERAL [None]
  - PANIC REACTION [None]
